FAERS Safety Report 8806279 (Version 3)
Quarter: 2014Q1

REPORT INFORMATION
  Report Type: Spontaneous
  Country: US (occurrence: US)
  Receive Date: 20120925
  Receipt Date: 20140312
  Transmission Date: 20141002
  Serious: Yes (Hospitalization, Other)
  Sender: FDA-Public Use
  Company Number: US-BAYER-2012-097663

PATIENT
  Age: 31 Year
  Sex: Female

DRUGS (6)
  1. YAZ [Suspect]
     Dosage: UNK
     Dates: start: 2010, end: 2011
  2. YASMIN [Suspect]
     Dosage: UNK
     Dates: start: 2010, end: 2011
  3. OCELLA [Suspect]
     Dosage: UNK
     Dates: start: 2010, end: 2011
  4. SYNTHROID [Concomitant]
  5. REMERON [Concomitant]
  6. ECASA [Concomitant]

REACTIONS (9)
  - Cerebrovascular accident [None]
  - Transient ischaemic attack [None]
  - Pain [None]
  - Abdominal pain [None]
  - General physical health deterioration [None]
  - Anxiety [None]
  - Emotional distress [None]
  - Pain [None]
  - Injury [None]
